FAERS Safety Report 20628733 (Version 1)
Quarter: 2022Q1

REPORT INFORMATION
  Report Type: Other
  Country: JP (occurrence: None)
  Receive Date: 20220323
  Receipt Date: 20220323
  Transmission Date: 20220424
  Serious: Yes (Hospitalization, Other)
  Sender: FDA-Public Use
  Company Number: JP-DEXPHARM-20220384

PATIENT
  Age: 34 Year
  Sex: Male

DRUGS (6)
  1. DICLOFENAC [Suspect]
     Active Substance: DICLOFENAC
     Indication: Pyrexia
     Dosage: SUPPOSITORIES 25MG THREE TIMES A DAY?FOR A WEEK
  2. ESOMEPRAZOLE [Suspect]
     Active Substance: ESOMEPRAZOLE
     Indication: Gastric ulcer
  3. AMOXICILLIN [Concomitant]
     Active Substance: AMOXICILLIN
  4. IBUPROFEN [Concomitant]
     Active Substance: IBUPROFEN
  5. CEFTRIAXONE [Concomitant]
     Active Substance: CEFTRIAXONE
  6. LEVOFLOXACIN [Concomitant]
     Active Substance: LEVOFLOXACIN

REACTIONS (1)
  - Tubulointerstitial nephritis and uveitis syndrome [Recovered/Resolved]
